FAERS Safety Report 10278912 (Version 3)
Quarter: 2014Q3

REPORT INFORMATION
  Report Type: Spontaneous
  Country: JP (occurrence: JP)
  Receive Date: 20140706
  Receipt Date: 20140708
  Transmission Date: 20150326
  Serious: Yes (Other)
  Sender: FDA-Public Use
  Company Number: JP-009507513-1406JPN010120

PATIENT
  Age: 43 Year
  Sex: Male
  Weight: 54 kg

DRUGS (2)
  1. TEMODAL [Suspect]
     Active Substance: TEMOZOLOMIDE
     Indication: MALIGNANT GLIOMA
     Dosage: 300 MG PER DAY, (UNTIL) 4TH CYCLE
     Route: 048
     Dates: start: 20140105, end: 20140616
  2. NASEA [Suspect]
     Active Substance: RAMOSETRON HYDROCHLORIDE
     Indication: NAUSEA
     Dosage: 0.1 MG, QD
     Route: 048
     Dates: start: 20140105, end: 20140616

REACTIONS (1)
  - Drug eruption [Recovered/Resolved]

NARRATIVE: CASE EVENT DATE: 20140612
